FAERS Safety Report 11121848 (Version 2)
Quarter: 2015Q2

REPORT INFORMATION
  Report Type: Spontaneous
  Country: CH (occurrence: CH)
  Receive Date: 20150519
  Receipt Date: 20150522
  Transmission Date: 20150821
  Serious: Yes (Other)
  Sender: FDA-Public Use
  Company Number: PHHY2015CH057197

PATIENT
  Sex: Female

DRUGS (2)
  1. SANDOSTATIN LAR DEPOT [Suspect]
     Active Substance: OCTREOTIDE ACETATE
     Indication: CONGENITAL CYSTIC KIDNEY DISEASE
     Dosage: 20 MG, EVERY 6 WEEKS
     Route: 030
     Dates: start: 20140623
  2. SANDOSTATIN LAR DEPOT [Suspect]
     Active Substance: OCTREOTIDE ACETATE
     Indication: HEPATIC CYST
     Dosage: 20 MG, SINCE 2 WEEKS EVERY 4 WEEKS
     Route: 030

REACTIONS (2)
  - Condition aggravated [Unknown]
  - Off label use [Unknown]
